FAERS Safety Report 14385238 (Version 1)
Quarter: 2018Q1

REPORT INFORMATION
  Report Type: Spontaneous
  Country: US (occurrence: US)
  Receive Date: 20180115
  Receipt Date: 20180115
  Transmission Date: 20180509
  Serious: Yes (Other)
  Sender: FDA-Public Use
  Company Number: US-SA-2017SA000367

PATIENT
  Age: 58 Year
  Sex: Female
  Weight: 72.57 kg

DRUGS (5)
  1. ZOMETA [Concomitant]
     Active Substance: ZOLEDRONIC ACID
  2. TAXOTERE [Suspect]
     Active Substance: DOCETAXEL
     Indication: BREAST CANCER FEMALE
     Route: 051
     Dates: start: 20130605, end: 20130605
  3. PARAPLATIN [Concomitant]
     Active Substance: CARBOPLATIN
  4. TAXOTERE [Suspect]
     Active Substance: DOCETAXEL
     Indication: BREAST CANCER FEMALE
     Route: 051
     Dates: start: 20130306, end: 20130306
  5. HERCEPTIN [Concomitant]
     Active Substance: TRASTUZUMAB

REACTIONS (5)
  - Anxiety [Unknown]
  - Psychological trauma [Unknown]
  - Emotional distress [Unknown]
  - Alopecia [Not Recovered/Not Resolved]
  - Pain [Unknown]

NARRATIVE: CASE EVENT DATE: 201312
